FAERS Safety Report 21701660 (Version 1)
Quarter: 2022Q4

REPORT INFORMATION
  Report Type: Spontaneous
  Country: CH (occurrence: CH)
  Receive Date: 20221208
  Receipt Date: 20221208
  Transmission Date: 20230113
  Serious: Yes (Other)
  Sender: FDA-Public Use
  Company Number: CH-BAYER-2022A166664

PATIENT
  Age: 31 Year
  Sex: Female

DRUGS (1)
  1. KYLEENA [Suspect]
     Active Substance: LEVONORGESTREL
     Indication: Contraception
     Dosage: 17.5?G/DAY
     Route: 015
     Dates: start: 20200605, end: 20221125

REACTIONS (7)
  - Pelvic inflammatory disease [Recovered/Resolved]
  - Urinary tract infection [Recovered/Resolved]
  - Pelvic pain [Recovered/Resolved]
  - Vulvovaginal candidiasis [Recovered/Resolved]
  - Device dislocation [Recovered/Resolved]
  - Bladder discomfort [Recovered/Resolved]
  - Bladder pain [Recovered/Resolved]

NARRATIVE: CASE EVENT DATE: 20210630
